FAERS Safety Report 17044136 (Version 1)
Quarter: 2019Q4

REPORT INFORMATION
  Report Type: Spontaneous
  Country: US (occurrence: US)
  Receive Date: 20191118
  Receipt Date: 20191118
  Transmission Date: 20200122
  Serious: No
  Sender: FDA-Public Use
  Company Number: US-BAUSCH-BL-2019-059642

PATIENT
  Age: 52 Year
  Sex: Female
  Weight: 113.5 kg

DRUGS (4)
  1. CLARITIN [Concomitant]
     Active Substance: LORATADINE
     Indication: PRURITUS
  2. BRYHALI [Suspect]
     Active Substance: HALOBETASOL PROPIONATE
     Indication: PRODUCT USE IN UNAPPROVED INDICATION
  3. BRYHALI [Suspect]
     Active Substance: HALOBETASOL PROPIONATE
     Indication: SWELLING
     Route: 061
     Dates: start: 20191023, end: 20191024
  4. CLARITIN [Concomitant]
     Active Substance: LORATADINE
     Indication: SEASONAL ALLERGY

REACTIONS (4)
  - Product use in unapproved indication [Unknown]
  - Arthropathy [Not Recovered/Not Resolved]
  - Drug effective for unapproved indication [Unknown]
  - Arthralgia [Not Recovered/Not Resolved]

NARRATIVE: CASE EVENT DATE: 20191023
